FAERS Safety Report 4531958-8 (Version None)
Quarter: 2004Q4

REPORT INFORMATION
  Report Type: 
  Country: None (occurrence: None)
  Receive Date: 20041217
  Receipt Date: 20041206
  Transmission Date: 20050328
  Serious: Yes (Hospitalization, Disabling)
  Sender: FDA-Public Use
  Company Number: 1515-080

PATIENT
  Age: 50 Year
  Sex: Male

DRUGS (4)
  1. VENOFER [Suspect]
     Indication: ANAEMIA
     Dosage: IV
     Route: 042
  2. PANTOPRAZOLE SODIUM [Concomitant]
  3. DESLORATIDIN [Concomitant]
  4. PRENISOLONE [Concomitant]

REACTIONS (1)
  - VASCULITIS NECROTISING [None]
